FAERS Safety Report 6986946-9 (Version None)
Quarter: 2010Q3

REPORT INFORMATION
  Report Type: 
  Country: None (occurrence: None)
  Receive Date: 20100916
  Receipt Date: 20100908
  Transmission Date: 20110219
  Serious: Yes (Hospitalization)
  Sender: FDA-Public Use
  Company Number: US-BIOGENIDEC-2010BI031227

PATIENT
  Age: 43 Year
  Sex: Female

DRUGS (2)
  1. TYSABRI [Suspect]
     Indication: MULTIPLE SCLEROSIS
     Route: 042
     Dates: start: 20090516, end: 20090917
  2. TYSABRI [Suspect]
     Route: 042
     Dates: start: 20100902

REACTIONS (2)
  - ROAD TRAFFIC ACCIDENT [None]
  - WRIST FRACTURE [None]
